FAERS Safety Report 7685667-7 (Version None)
Quarter: 2011Q3

REPORT INFORMATION
  Report Type: 
  Country: None (occurrence: None)
  Receive Date: 20110816
  Receipt Date: 20110806
  Transmission Date: 20111222
  Serious: Yes (Other)
  Sender: FDA-Public Use
  Company Number: US-PFIZER INC-2011185890

PATIENT
  Sex: Female

DRUGS (11)
  1. XYREM [Suspect]
     Indication: NARCOLEPSY
     Dosage: 3 G, 2X/DAY
     Route: 048
     Dates: start: 20110524, end: 20110101
  2. XYREM [Suspect]
     Indication: CATAPLEXY
  3. HYDROXYZINE [Suspect]
     Dosage: UNK
  4. METHADONE [Concomitant]
  5. PRIMIDONE [Concomitant]
  6. DYAZIDE [Concomitant]
  7. OMEPRAZOLE [Concomitant]
  8. CLONIDINE [Concomitant]
  9. MONTELUKAST SODIUM [Concomitant]
  10. ALBUTEROL SULFATE AUTOHALER [Concomitant]
  11. SERTRALINE HYDROCHLORIDE [Concomitant]

REACTIONS (3)
  - MIDDLE INSOMNIA [None]
  - ELECTROCARDIOGRAM QT PROLONGED [None]
  - FATIGUE [None]
